FAERS Safety Report 15739759 (Version 1)
Quarter: 2018Q4

REPORT INFORMATION
  Report Type: Spontaneous
  Country: US (occurrence: US)
  Receive Date: 20181204
  Receipt Date: 20181204
  Transmission Date: 20190205
  Serious: No
  Sender: FDA-Public Use
  Company Number: None

PATIENT
  Age: 67 Year
  Sex: Male

DRUGS (2)
  1. MYCOPHENOLATE MOF TAB 500MG [Suspect]
     Active Substance: MYCOPHENOLATE MOFETIL
     Dates: start: 201608
  2. TACROLLMUS 1 MG [Concomitant]

REACTIONS (2)
  - Fluid retention [None]
  - Diarrhoea [None]

NARRATIVE: CASE EVENT DATE: 20180829
